FAERS Safety Report 6807176-7 (Version None)
Quarter: 2010Q2

REPORT INFORMATION
  Report Type: 
  Country: None (occurrence: None)
  Receive Date: 20100629
  Receipt Date: 20080805
  Transmission Date: 20101027
  Serious: Yes (Other)
  Sender: FDA-Public Use
  Company Number: US-PFIZER INC-2008045218

PATIENT
  Sex: Female
  Weight: 77.1 kg

DRUGS (21)
  1. ZOLOFT [Suspect]
     Dosage: DAILY
     Dates: start: 20010101, end: 20080520
  2. TIKOSYN [Interacting]
     Indication: ATRIAL FIBRILLATION
     Dates: start: 20080520
  3. BENICAR [Concomitant]
  4. WARFARIN [Concomitant]
  5. DIGITEK [Concomitant]
  6. FUROSEMIDE [Concomitant]
  7. TOPROL-XL [Concomitant]
  8. BUSPAR [Concomitant]
  9. SYNTHROID [Concomitant]
  10. PREMARIN [Concomitant]
  11. ACIPHEX [Concomitant]
  12. SIMVASTATIN [Concomitant]
  13. URSODIOL [Concomitant]
  14. HYDROCODONE [Concomitant]
  15. CALCIUM WITH VITAMIN D [Concomitant]
  16. GLUCOSAMINE W/CHONDROITIN SULFATES [Concomitant]
  17. LOVAZA [Concomitant]
  18. MULTI-VITAMINS [Concomitant]
  19. CORTISONE [Concomitant]
  20. DICLOFENAC SODIUM [Concomitant]
  21. LIDOCAINE [Concomitant]

REACTIONS (4)
  - BRADYCARDIA [None]
  - DRUG INTERACTION [None]
  - DYSPNOEA [None]
  - PANIC DISORDER [None]
